FAERS Safety Report 9373672 (Version 1)
Quarter: 2013Q2

REPORT INFORMATION
  Report Type: Spontaneous
  Country: IT (occurrence: IT)
  Receive Date: 20130627
  Receipt Date: 20130627
  Transmission Date: 20140414
  Serious: Yes (Hospitalization)
  Sender: FDA-Public Use
  Company Number: IT-MYLANLABS-2013S1013114

PATIENT
  Age: 64 Year
  Sex: Male
  Weight: 59 kg

DRUGS (7)
  1. IRINOTECAN [Suspect]
     Indication: COLON NEOPLASM
     Dosage: CYCLIC
     Route: 042
     Dates: start: 20121220, end: 20130426
  2. AVASTIN /01555201/ [Suspect]
     Indication: COLON NEOPLASM
     Dosage: CYCLIC
     Route: 042
     Dates: start: 20130222, end: 20130426
  3. AVASTIN /01555201/ [Suspect]
     Indication: COLON NEOPLASM
     Dosage: CYCLIC
     Route: 042
     Dates: start: 20130222, end: 20130426
  4. ONDANSETRON [Suspect]
     Indication: PREMEDICATION
     Dosage: CYCLIC
     Route: 042
     Dates: start: 20121220, end: 20130426
  5. ZANTAC [Concomitant]
     Indication: PRODUCT USED FOR UNKNOWN INDICATION
     Dosage: 50 MG/5 ML SOLUTION FOR INJECTION
     Route: 042
     Dates: start: 20121220, end: 20130426
  6. XELODA [Concomitant]
     Indication: COLON NEOPLASM
     Route: 048
     Dates: start: 20121220, end: 20130426
  7. DEXAMETHASONE PHOSPHATE [Concomitant]
     Indication: PREMEDICATION
     Dates: start: 20121220, end: 20130426

REACTIONS (2)
  - Hypertension [Recovered/Resolved]
  - Subileus [Recovered/Resolved]
